FAERS Safety Report 11276927 (Version 1)
Quarter: 2020Q3

REPORT INFORMATION
  Report Type: Report from Study
  Country: HU (occurrence: HU)
  Receive Date: 20150716
  Receipt Date: 20150716
  Transmission Date: 20201104
  Serious: Yes (Hospitalization)
  Sender: FDA-Public Use
  Company Number: HU-JNJFOC-20140319148

PATIENT
  Age: 61 Year
  Sex: Male
  Weight: 78 kg

DRUGS (4)
  1. USTEKINUMAB [Suspect]
     Active Substance: USTEKINUMAB
     Indication: CROHN^S DISEASE
     Route: 058
     Dates: start: 20140226
  2. SALOFALK [MESALAZINE] [Concomitant]
     Active Substance: MESALAMINE
     Indication: CROHN^S DISEASE
     Route: 048
     Dates: start: 20121220
  3. USTEKINUMAB [Suspect]
     Active Substance: USTEKINUMAB
     Indication: CROHN^S DISEASE
     Route: 058
     Dates: start: 20130325
  4. PERINDOPRIL [Concomitant]
     Active Substance: PERINDOPRIL
     Indication: HYPERTENSION
     Route: 048
     Dates: start: 20121220

REACTIONS (1)
  - Acarodermatitis [Recovered/Resolved]

NARRATIVE: CASE EVENT DATE: 20140313
